FAERS Safety Report 7879049-2 (Version None)
Quarter: 2011Q4

REPORT INFORMATION
  Report Type: 
  Country: None (occurrence: None)
  Receive Date: 20111101
  Receipt Date: 20111024
  Transmission Date: 20120403
  Serious: Yes (Other)
  Sender: FDA-Public Use
  Company Number: PHEH2011US03724

PATIENT
  Sex: Female

DRUGS (13)
  1. HYDROCHLOROTHIAZIDE [Concomitant]
     Dosage: 25 MG, QD
     Route: 048
  2. L-LYSINE [Concomitant]
     Dosage: UNK UKN, UNK
     Route: 048
  3. RELPAX [Concomitant]
     Indication: HEADACHE
     Dosage: 40 MG, PRN
     Route: 048
  4. CLONOPIN [Concomitant]
     Dosage: 1 MG, PRN
     Route: 048
  5. VITAMIN D [Concomitant]
     Dosage: UNK UKN, UNK
     Route: 048
  6. CYCLOPHOSPHAMIDE [Concomitant]
     Dosage: 10 MG, UNK
     Route: 048
  7. RESTORIL [Concomitant]
     Dosage: 15 MG, UNK
     Route: 048
  8. NORETHINDRONE [Concomitant]
     Dosage: UNK UKN, QD
     Route: 048
  9. ADDERALL 5 [Concomitant]
     Dosage: UNK UKN, UNK
     Route: 048
  10. GILENYA [Suspect]
     Indication: RELAPSING-REMITTING MULTIPLE SCLEROSIS
     Dosage: 0.5 MG, QD
     Route: 048
     Dates: start: 20110907
  11. TOPROL-XL [Concomitant]
     Dosage: 50 MG, QD
     Route: 048
  12. CELEXA [Concomitant]
     Dosage: 40 MG, QD
     Route: 048
  13. ZEGERID [Concomitant]
     Dosage: UNK UKN, BID
     Route: 048

REACTIONS (4)
  - FATIGUE [None]
  - NAUSEA [None]
  - DEPRESSION [None]
  - GASTROINTESTINAL PAIN [None]
